FAERS Safety Report 20725726 (Version 1)
Quarter: 2022Q2

REPORT INFORMATION
  Report Type: Spontaneous
  Country: US (occurrence: None)
  Receive Date: 20220419
  Receipt Date: 20220419
  Transmission Date: 20220721
  Serious: No
  Sender: FDA-Public Use
  Company Number: None

PATIENT
  Age: 73 Year
  Sex: Female
  Weight: 96.75 kg

DRUGS (4)
  1. AZITHROMYCIN [Suspect]
     Active Substance: AZITHROMYCIN
     Indication: Sinusitis
     Dosage: OTHER QUANTITY : 1 TABLET(S);?
     Route: 048
     Dates: start: 20220412, end: 20220415
  2. VIT D 2 [Concomitant]
  3. VITAMIN C [Concomitant]
     Active Substance: ASCORBIC ACID
  4. BIOTIN [Concomitant]
     Active Substance: BIOTIN

REACTIONS (10)
  - Diarrhoea [None]
  - Vomiting [None]
  - Dizziness [None]
  - Pain [None]
  - Hyperhidrosis [None]
  - Fatigue [None]
  - Abdominal pain upper [None]
  - Back pain [None]
  - Vertigo [None]
  - Pain [None]

NARRATIVE: CASE EVENT DATE: 20220416
